FAERS Safety Report 5158272-4 (Version None)
Quarter: 2006Q4

REPORT INFORMATION
  Report Type: 
  Country: None (occurrence: None)
  Receive Date: 20061128
  Receipt Date: 20061122
  Transmission Date: 20070319
  Serious: Yes (Death, Other)
  Sender: FDA-Public Use
  Company Number: US-JNJFOC-20060906515

PATIENT
  Sex: Female
  Weight: 75 kg

DRUGS (12)
  1. REOPRO [Suspect]
     Indication: PERCUTANEOUS CORONARY INTERVENTION
     Route: 042
  2. THIENOPYRIDINE [Suspect]
     Indication: ACUTE CORONARY SYNDROME
  3. ASPIRIN [Concomitant]
     Indication: MYOCARDIAL INFARCTION
  4. HEPARIN [Concomitant]
     Indication: PERCUTANEOUS CORONARY INTERVENTION
  5. MIDAZOLAM [Concomitant]
     Indication: SEDATIVE THERAPY
  6. TARCEFOKSYM [Concomitant]
     Indication: PROPHYLAXIS
  7. ALBUMIN (HUMAN) [Concomitant]
     Indication: PROPHYLAXIS
  8. DOPAMINE HCL IN 5% DEXTROSE [Concomitant]
  9. DIGOXIN [Concomitant]
  10. OMEPRAZOLE [Concomitant]
  11. EPINEPHRINE [Concomitant]
  12. ATROPINE [Concomitant]

REACTIONS (2)
  - CARDIOGENIC SHOCK [None]
  - GASTROINTESTINAL HAEMORRHAGE [None]
